FAERS Safety Report 8479549-0 (Version None)
Quarter: 2012Q2

REPORT INFORMATION
  Report Type: 
  Country: None (occurrence: None)
  Receive Date: 20120629
  Receipt Date: 20120626
  Transmission Date: 20120825
  Serious: Yes (Other)
  Sender: FDA-Public Use
  Company Number: CA-PFIZER INC-2012067163

PATIENT
  Age: 31 Year
  Sex: Female

DRUGS (2)
  1. EFFEXOR XR [Suspect]
     Dosage: 150 MG, 1X/DAY
     Route: 048
     Dates: start: 20060901, end: 20060901
  2. EFFEXOR XR [Suspect]
     Dosage: 75 MG, 1X/DAY
     Route: 048
     Dates: start: 20060901, end: 20060901

REACTIONS (5)
  - GRAND MAL CONVULSION [None]
  - FACIAL BONES FRACTURE [None]
  - FALL [None]
  - PERIORBITAL HAEMATOMA [None]
  - MUSCLE TWITCHING [None]
